FAERS Safety Report 25859271 (Version 2)
Quarter: 2025Q4

REPORT INFORMATION
  Report Type: Report from Study
  Country: US (occurrence: US)
  Receive Date: 20250929
  Receipt Date: 20251003
  Transmission Date: 20260118
  Serious: Yes (Hospitalization)
  Sender: ACADIA PHARMACEUTICALS
  Company Number: US-ACADIA PHARMACEUTICALS INC.-ACA-2025-PIM-010722

PATIENT
  Age: 77 Year
  Sex: Male

DRUGS (17)
  1. NUPLAZID [Suspect]
     Active Substance: PIMAVANSERIN TARTRATE
     Indication: Parkinson^s disease
     Dosage: 34 MILLIGRAM, QD
     Route: 048
     Dates: start: 20240206
  2. GEMTESA [Concomitant]
     Active Substance: VIBEGRON
  3. PRAMIPEXOLE [Concomitant]
     Active Substance: PRAMIPEXOLE
  4. XTAMPZA ER [Concomitant]
     Active Substance: OXYCODONE
  5. CARBIDOPA\LEVODOPA [Concomitant]
     Active Substance: CARBIDOPA\LEVODOPA
  6. CLONAZEPAM [Concomitant]
     Active Substance: CLONAZEPAM
  7. CRANBERRY [Concomitant]
     Active Substance: CRANBERRY
  8. FUROSEMIDE [Concomitant]
     Active Substance: FUROSEMIDE
  9. GARLIC [Concomitant]
     Active Substance: GARLIC
  10. MIDODRINE [Concomitant]
     Active Substance: MIDODRINE
  11. VITAMINS [Concomitant]
     Active Substance: VITAMINS
     Dosage: 50 PLUS
  12. PANTOPRAZOLE [Concomitant]
     Active Substance: PANTOPRAZOLE
  13. SENNOSIDES A AND B [Concomitant]
     Active Substance: SENNOSIDES A AND B
  14. SERTRALINE [Concomitant]
     Active Substance: SERTRALINE HYDROCHLORIDE
  15. SPIRONOLACTONE [Concomitant]
     Active Substance: SPIRONOLACTONE
  16. RETINOL [Concomitant]
     Active Substance: RETINOL
  17. VITAMIN B1 [Concomitant]
     Active Substance: THIAMINE HYDROCHLORIDE

REACTIONS (2)
  - General physical health deterioration [Not Recovered/Not Resolved]
  - Product dose omission issue [Not Recovered/Not Resolved]

NARRATIVE: CASE EVENT DATE: 20250915
